FAERS Safety Report 10774962 (Version 1)
Quarter: 2015Q1

REPORT INFORMATION
  Report Type: Spontaneous
  Country: US (occurrence: None)
  Receive Date: 20150206
  Receipt Date: 20150206
  Transmission Date: 20150721
  Serious: Yes (Hospitalization)
  Sender: FDA-Public Use
  Company Number: HYP201410-000076

PATIENT
  Age: 27 Month
  Sex: Female

DRUGS (2)
  1. CITRULLINE (CITRULLINE) [Concomitant]
  2. RAVICTI [Suspect]
     Active Substance: GLYCEROL PHENYLBUTYRATE
     Indication: UREA CYCLE ENZYME DEFICIENCY
     Dates: start: 20140801, end: 20140802

REACTIONS (5)
  - Hyperammonaemic crisis [None]
  - Vomiting [None]
  - Irritability [None]
  - Hypophagia [None]
  - Somnolence [None]

NARRATIVE: CASE EVENT DATE: 20141003
